FAERS Safety Report 24539239 (Version 3)
Quarter: 2024Q4

REPORT INFORMATION
  Report Type: Report from Study
  Country: CN (occurrence: CN)
  Receive Date: 20241023
  Receipt Date: 20241213
  Transmission Date: 20250115
  Serious: Yes (Hospitalization)
  Sender: RANBAXY
  Company Number: CN-SUN PHARMACEUTICAL INDUSTRIES LTD-2024R1-474381

PATIENT
  Age: 74 Year
  Sex: Female
  Weight: 71 kg

DRUGS (19)
  1. SONIDEGIB [Suspect]
     Active Substance: SONIDEGIB
     Indication: Basal cell carcinoma
     Dosage: 200 MILLIGRAM, QD
     Route: 048
     Dates: start: 20240327, end: 20240717
  2. SONIDEGIB [Suspect]
     Active Substance: SONIDEGIB
     Dosage: 200 MILLIGRAM, QD
     Route: 048
     Dates: start: 20240807, end: 20241004
  3. ASPIRIN [Concomitant]
     Active Substance: ASPIRIN
     Indication: Cardiac disorder
     Dosage: 100 MILLIGRAM, BID
     Route: 048
  4. CARVEDILOL [Concomitant]
     Active Substance: CARVEDILOL
     Indication: Cardiac disorder
     Dosage: 10 MILLIGRAM, BID
     Route: 048
  5. EZETIMIBE [Concomitant]
     Active Substance: EZETIMIBE
     Indication: Cardiac disorder
     Dosage: 10 MILLIGRAM, DAILY
     Route: 048
  6. FINASTERIDE [Concomitant]
     Active Substance: FINASTERIDE
     Indication: Benign prostatic hyperplasia
     Dosage: 1 CAPSULE/TIME
     Route: 048
  7. TAMSULOSIN [Concomitant]
     Active Substance: TAMSULOSIN
     Indication: Benign prostatic hyperplasia
     Dosage: 1 TIME/DAY
     Route: 048
  8. TELMISARTAN [Concomitant]
     Active Substance: TELMISARTAN
     Indication: Hypertension
     Dosage: 40 MILLIGRAM, QD
     Route: 048
  9. METOPROLOL TARTRATE [Concomitant]
     Active Substance: METOPROLOL TARTRATE
     Indication: Hypertension
     Dosage: 25 MILLIGRAM, BID
     Route: 048
  10. HUMALOG [Concomitant]
     Active Substance: INSULIN LISPRO
     Indication: Diabetes mellitus
     Dosage: 140U ONCE
  11. METFORMIN HYDROCHLORIDE [Concomitant]
     Active Substance: METFORMIN HYDROCHLORIDE
     Indication: Diabetes mellitus
     Dosage: 0.25 MILLIGRAM, BID
     Route: 048
     Dates: start: 2020
  12. SONIDEGIB PHOSPHATE [Concomitant]
     Active Substance: SONIDEGIB PHOSPHATE
     Indication: Diabetes mellitus
     Dosage: 0.25 MILLIGRAM, BID
     Route: 048
     Dates: start: 2020
  13. SONIDEGIB PHOSPHATE [Concomitant]
     Active Substance: SONIDEGIB PHOSPHATE
     Indication: Cardiac disorder
     Dosage: 10 MILLIGRAM, BID
     Route: 048
     Dates: start: 2013
  14. SONIDEGIB PHOSPHATE [Concomitant]
     Active Substance: SONIDEGIB PHOSPHATE
     Dosage: 10 MILLIGRAM, QD
     Route: 048
     Dates: start: 2013
  15. SONIDEGIB PHOSPHATE [Concomitant]
     Active Substance: SONIDEGIB PHOSPHATE
     Indication: Benign prostatic hyperplasia
     Dosage: UNK
     Route: 048
     Dates: start: 2018
  16. SONIDEGIB PHOSPHATE [Concomitant]
     Active Substance: SONIDEGIB PHOSPHATE
     Dosage: UNK
     Route: 048
     Dates: start: 2018
  17. SONIDEGIB PHOSPHATE [Concomitant]
     Active Substance: SONIDEGIB PHOSPHATE
     Indication: Hypertension
     Dosage: 40 MILLIGRAM, QD
     Route: 048
     Dates: start: 1994
  18. SONIDEGIB PHOSPHATE [Concomitant]
     Active Substance: SONIDEGIB PHOSPHATE
     Dosage: 25 MILLIGRAM, QD
     Route: 048
     Dates: start: 1994
  19. SONIDEGIB PHOSPHATE [Concomitant]
     Active Substance: SONIDEGIB PHOSPHATE
     Dosage: 0.15 GRAM, BID
     Route: 048
     Dates: start: 1994

REACTIONS (1)
  - Functional gastrointestinal disorder [Recovered/Resolved]

NARRATIVE: CASE EVENT DATE: 20241004
